FAERS Safety Report 14411840 (Version 5)
Quarter: 2018Q2

REPORT INFORMATION
  Report Type: Spontaneous
  Country: US (occurrence: US)
  Receive Date: 20180119
  Receipt Date: 20180424
  Transmission Date: 20180711
  Serious: Yes (Hospitalization)
  Sender: FDA-Public Use
  Company Number: US-VERTEX PHARMACEUTICALS-2018-000340

PATIENT
  Age: 14 Year
  Sex: Male

DRUGS (8)
  1. LEVOCETIRIZINE [Concomitant]
     Active Substance: LEVOCETIRIZINE
  2. ESOMEPRAZOLE [Concomitant]
     Active Substance: ESOMEPRAZOLE
  3. PULMOZYME [Concomitant]
     Active Substance: DORNASE ALFA
  4. MOMETASONE [Concomitant]
     Active Substance: MOMETASONE
  5. LEVAQUIN [Concomitant]
     Active Substance: LEVOFLOXACIN
  6. ORKAMBI [Suspect]
     Active Substance: IVACAFTOR\LUMACAFTOR
     Indication: CYSTIC FIBROSIS
     Dosage: 400/250 MG, BID
     Route: 048
     Dates: start: 20170603, end: 20171231
  7. DRONABINOL. [Concomitant]
     Active Substance: DRONABINOL
  8. CREON [Concomitant]
     Active Substance: PANCRELIPASE AMYLASE\PANCRELIPASE LIPASE\PANCRELIPASE PROTEASE

REACTIONS (5)
  - Cough [Unknown]
  - Hospitalisation [Unknown]
  - Pneumonia [Recovered/Resolved]
  - Infective pulmonary exacerbation of cystic fibrosis [Recovered/Resolved]
  - Forced expiratory volume decreased [Unknown]

NARRATIVE: CASE EVENT DATE: 2017
